FAERS Safety Report 7170658-5 (Version None)
Quarter: 2010Q4

REPORT INFORMATION
  Report Type: 
  Country: None (occurrence: None)
  Receive Date: 20101217
  Receipt Date: 20101213
  Transmission Date: 20110411
  Serious: Yes (Hospitalization)
  Sender: FDA-Public Use
  Company Number: B0688622A

PATIENT
  Age: 73 Year
  Sex: Male

DRUGS (13)
  1. PARACETAMOL [Suspect]
     Dosage: 4G PER DAY
  2. SIMVASTATIN [Suspect]
     Route: 048
  3. OMACOR [Suspect]
     Route: 048
  4. TAZOCIN [Suspect]
     Dosage: 13.5G PER DAY
  5. METRONIDAZOLE [Suspect]
  6. OMEPRAZOLE [Suspect]
     Dosage: 40MG PER DAY
  7. BENDROFLUMETHIAZIDE [Suspect]
     Route: 048
  8. LANSOPRAZOLE [Suspect]
  9. FELODIPINE [Concomitant]
     Dosage: 2.5MG PER DAY
     Route: 048
  10. BECLOMETHASONE DIPROPIONATE [Concomitant]
     Dosage: 500MCG PER DAY
  11. FLUTICASONE PROPIONATE [Concomitant]
  12. ASPIRIN [Concomitant]
     Route: 048
  13. CLEXANE [Concomitant]
     Dosage: 40MG PER DAY
     Route: 058

REACTIONS (2)
  - JAUNDICE [None]
  - LIVER FUNCTION TEST ABNORMAL [None]
